FAERS Safety Report 5706167-7 (Version None)
Quarter: 2008Q2

REPORT INFORMATION
  Report Type: 
  Country: None (occurrence: None)
  Receive Date: 20080415
  Receipt Date: 20080409
  Transmission Date: 20081010
  Serious: Yes (Hospitalization, Disabling, Other)
  Sender: FDA-Public Use
  Company Number: CA-ASTRAZENECA-2008UW04712

PATIENT
  Age: 66 Year
  Sex: Female

DRUGS (1)
  1. CRESTOR [Suspect]
     Indication: BLOOD CHOLESTEROL INCREASED
     Route: 048
     Dates: start: 20070701, end: 20070920

REACTIONS (5)
  - MONOPLEGIA [None]
  - MYALGIA [None]
  - NEURALGIC AMYOTROPHY [None]
  - POLYARTHRITIS [None]
  - PRURITUS [None]
